FAERS Safety Report 10098242 (Version 1)
Quarter: 2014Q2

REPORT INFORMATION
  Report Type: Spontaneous
  Country: US (occurrence: US)
  Receive Date: 20140423
  Receipt Date: 20140423
  Transmission Date: 20141212
  Serious: Yes (Other)
  Sender: FDA-Public Use
  Company Number: US-BRISTOL-MYERS SQUIBB COMPANY-20384863

PATIENT
  Age: 52 Year
  Sex: Male
  Weight: 93.42 kg

DRUGS (5)
  1. YERVOY [Suspect]
     Indication: MALIGNANT MELANOMA
     Dosage: 05NOV13,04DEC13,27DEC13,21JAN14,INTERRUPTED FOR 2WKS
     Dates: start: 20131105
  2. SYNTHROID [Concomitant]
  3. XANAX [Concomitant]
     Dosage: AT BED TIME
  4. PREDNISONE [Concomitant]
  5. DECADRON [Concomitant]
     Indication: METASTASES TO CENTRAL NERVOUS SYSTEM

REACTIONS (1)
  - Malignant neoplasm progression [Unknown]
